FAERS Safety Report 21351923 (Version 1)
Quarter: 2022Q3

REPORT INFORMATION
  Report Type: Spontaneous
  Country: US (occurrence: US)
  Receive Date: 20220920
  Receipt Date: 20220920
  Transmission Date: 20221027
  Serious: No
  Sender: FDA-Public Use
  Company Number: US-AMGEN-USASP2022158350

PATIENT
  Age: 73 Year
  Sex: Female
  Weight: 47.619 kg

DRUGS (1)
  1. REPATHA [Suspect]
     Active Substance: EVOLOCUMAB
     Indication: Blood cholesterol increased
     Dosage: 40 MILLIGRAM, Q2WK
     Route: 058
     Dates: start: 20220721

REACTIONS (10)
  - Micturition urgency [Unknown]
  - Dysuria [Unknown]
  - Aphonia [Unknown]
  - Abdominal pain upper [Unknown]
  - Musculoskeletal pain [Unknown]
  - Dizziness [Unknown]
  - Hypertension [Unknown]
  - Diarrhoea [Unknown]
  - Nasopharyngitis [Not Recovered/Not Resolved]
  - Headache [Not Recovered/Not Resolved]

NARRATIVE: CASE EVENT DATE: 20220101
